FAERS Safety Report 24588153 (Version 1)
Quarter: 2024Q4

REPORT INFORMATION
  Report Type: Report from Study
  Country: GB (occurrence: GB)
  Receive Date: 20241107
  Receipt Date: 20241107
  Transmission Date: 20250115
  Serious: Yes (Other)
  Sender: ABBVIE
  Company Number: GB-ABBVIE-5991409

PATIENT
  Age: 44 Year
  Sex: Female

DRUGS (1)
  1. SKYRIZI [Suspect]
     Active Substance: RISANKIZUMAB-RZAA
     Indication: Crohn^s disease
     Dosage: FORM STRENGTH - 360 MILLIGRAM
     Route: 058
     Dates: end: 202410

REACTIONS (2)
  - Anal abscess [Unknown]
  - Procedural pain [Unknown]

NARRATIVE: CASE EVENT DATE: 20241001
